FAERS Safety Report 23633462 (Version 2)
Quarter: 2025Q3

REPORT INFORMATION
  Report Type: Report from Study
  Country: EU (occurrence: EU)
  Receive Date: 20240314
  Receipt Date: 20250804
  Transmission Date: 20251021
  Serious: No
  Sender: TAKEDA
  Company Number: EU-TAKEDA-2024TUS023402

PATIENT
  Age: 33 Year
  Sex: Female
  Weight: 62 kg

DRUGS (2)
  1. LANADELUMAB [Suspect]
     Active Substance: LANADELUMAB
     Indication: Hereditary angioedema
     Dosage: UNK, UNK, MONTHLY
     Dates: start: 20221107, end: 20240208
  2. IRON [Concomitant]
     Active Substance: IRON
     Indication: Anaemia
     Dosage: 40 MILLIGRAM, QD
     Dates: start: 2023, end: 20240307

REACTIONS (2)
  - Pregnancy [Unknown]
  - No adverse event [Unknown]

NARRATIVE: CASE EVENT DATE: 20240101
